FAERS Safety Report 8647740 (Version 2)
Quarter: 2014Q1

REPORT INFORMATION
  Report Type: Spontaneous
  Country: US (occurrence: None)
  Receive Date: 20120323
  Receipt Date: 20130305
  Transmission Date: 20141002
  Serious: Yes (Hospitalization, Disabling)
  Sender: FDA-Public Use
  Company Number: 163-21880-11101347

PATIENT
  Age: 33 Year
  Sex: Male

DRUGS (1)
  1. REVLIMID [Suspect]
     Indication: MALIGNANT ANORECTAL NEOPLASM
     Dosage: 10 MG, 1 IN 1 D, PO
     Route: 048
     Dates: start: 20110702, end: 20110709

REACTIONS (2)
  - Cerebrovascular accident [None]
  - Transient ischaemic attack [None]
